FAERS Safety Report 6712513-8 (Version None)
Quarter: 2010Q2

REPORT INFORMATION
  Report Type: 
  Country: None (occurrence: None)
  Receive Date: 20100506
  Receipt Date: 20100426
  Transmission Date: 20101027
  Serious: Yes (Disabling)
  Sender: FDA-Public Use
  Company Number: FR-BRACCO-000396

PATIENT
  Age: 45 Year
  Sex: Female

DRUGS (1)
  1. IOPAMIDOL [Suspect]
     Indication: COMPUTERISED TOMOGRAM ABDOMEN
     Dates: start: 20060826, end: 20060826

REACTIONS (2)
  - COMPLEX REGIONAL PAIN SYNDROME [None]
  - EXTRAVASATION [None]
